FAERS Safety Report 10928119 (Version 1)
Quarter: 2015Q1

REPORT INFORMATION
  Report Type: Report from Study
  Country: JP (occurrence: JP)
  Receive Date: 20150319
  Receipt Date: 20150319
  Transmission Date: 20150721
  Serious: Yes (Hospitalization)
  Sender: FDA-Public Use
  Company Number: JP-BIOGENIDEC-2015BI035331

PATIENT
  Age: 68 Year
  Sex: Male

DRUGS (10)
  1. AVONEX [Suspect]
     Active Substance: INTERFERON BETA-1A
     Indication: RELAPSING-REMITTING MULTIPLE SCLEROSIS
     Route: 030
     Dates: start: 20091002
  2. LOXONIN [Concomitant]
     Active Substance: LOXOPROFEN SODIUM
     Dates: start: 20091002
  3. PREDNISOLONE. [Concomitant]
     Active Substance: PREDNISOLONE
     Dates: start: 20091002
  4. TAKEPRON [Concomitant]
     Active Substance: LANSOPRAZOLE
     Dates: start: 20091002, end: 20100211
  5. SELBEX [Concomitant]
     Active Substance: TEPRENONE
     Dates: start: 20091002
  6. HYDANTOL F [Concomitant]
     Active Substance: CAFFEINE\PHENOBARBITAL\PHENYTOIN\SODIUM BENZOATE
     Dates: start: 20091002
  7. BAYASPRIN [Concomitant]
     Dates: start: 20091002
  8. SOLU-MEDROL [Concomitant]
     Active Substance: METHYLPREDNISOLONE SODIUM SUCCINATE
     Dates: start: 20100225, end: 20100227
  9. SOLU-MEDROL [Concomitant]
     Active Substance: METHYLPREDNISOLONE SODIUM SUCCINATE
     Dates: start: 20130304, end: 20130307
  10. OMEPRAL [Concomitant]
     Active Substance: OMEPRAZOLE
     Dates: start: 20100212

REACTIONS (2)
  - Pneumonia aspiration [Recovered/Resolved]
  - Multiple sclerosis relapse [Unknown]

NARRATIVE: CASE EVENT DATE: 20100225
